FAERS Safety Report 12181712 (Version 5)
Quarter: 2017Q1

REPORT INFORMATION
  Report Type: Spontaneous
  Country: JP (occurrence: JP)
  Receive Date: 20160315
  Receipt Date: 20170202
  Transmission Date: 20170428
  Serious: Yes (Hospitalization)
  Sender: FDA-Public Use
  Company Number: PHJP2016JP005331

PATIENT
  Age: 56 Year
  Sex: Female
  Weight: 85.9 kg

DRUGS (19)
  1. COSENTYX [Suspect]
     Active Substance: SECUKINUMAB
     Dosage: 300 MG, UNK
     Route: 058
     Dates: start: 20160331, end: 20160428
  2. CALBLOCK [Concomitant]
     Active Substance: AZELNIDIPINE
     Indication: HYPERTENSION
     Dosage: 16 MG, QD
     Route: 048
     Dates: start: 20150514
  3. ZETIA [Concomitant]
     Active Substance: EZETIMIBE
     Indication: HYPERLIPIDAEMIA
     Dosage: 10 MG, QD
     Route: 048
     Dates: start: 20130620
  4. ZINC OXIDE. [Concomitant]
     Active Substance: ZINC OXIDE
     Indication: PUSTULAR PSORIASIS
     Route: 061
  5. COSENTYX [Suspect]
     Active Substance: SECUKINUMAB
     Dosage: 300 MG, QW
     Route: 058
     Dates: start: 20160225
  6. THYRADIN S [Concomitant]
     Active Substance: LEVOTHYROXINE SODIUM
     Indication: HYPOTHYROIDISM
     Dosage: 150 UG, QD
     Route: 048
     Dates: start: 20100609
  7. LOXONIN [Concomitant]
     Active Substance: LOXOPROFEN SODIUM
     Indication: PSORIATIC ARTHROPATHY
     Dosage: 60 MG, QD
     Route: 048
     Dates: start: 20100427
  8. COSENTYX [Suspect]
     Active Substance: SECUKINUMAB
     Indication: PUSTULAR PSORIASIS
     Dosage: 300 MG, QW
     Route: 058
     Dates: start: 20160204
  9. COSENTYX [Suspect]
     Active Substance: SECUKINUMAB
     Dosage: 300 MG, QW
     Route: 058
     Dates: start: 20160212
  10. COSENTYX [Suspect]
     Active Substance: SECUKINUMAB
     Dosage: 300 MG, UNK
     Route: 058
     Dates: start: 20160428, end: 20160428
  11. TIGASON                            /02207501/ [Concomitant]
     Indication: PUSTULAR PSORIASIS
     Dosage: 20 MG, BID
     Route: 048
     Dates: start: 20110606
  12. ALLELOCK [Concomitant]
     Active Substance: OLOPATADINE HYDROCHLORIDE
     Indication: PUSTULAR PSORIASIS
     Dosage: 5 MG, BID
     Route: 048
     Dates: start: 20100427
  13. RINDERON VG [Concomitant]
     Active Substance: BETAMETHASONE VALERATE\GENTAMICIN SULFATE
     Indication: PUSTULAR PSORIASIS
     Route: 061
  14. CALONAL [Concomitant]
     Active Substance: ACETAMINOPHEN
     Indication: PUSTULAR PSORIASIS
     Dosage: 400 MG, PRN
     Route: 048
  15. COSENTYX [Suspect]
     Active Substance: SECUKINUMAB
     Dosage: 300 MG, QW
     Route: 058
     Dates: start: 20160218
  16. PARIET [Concomitant]
     Active Substance: RABEPRAZOLE SODIUM
     Indication: GASTROOESOPHAGEAL REFLUX DISEASE
     Dosage: 10 MG, QD
     Route: 048
     Dates: start: 20110611
  17. PREMINENT [Concomitant]
     Active Substance: HYDROCHLOROTHIAZIDE\LOSARTAN POTASSIUM
     Indication: HYPERTENSION
     Dosage: 1 DF, QD
     Route: 048
     Dates: start: 20150514
  18. ADOAIR [Concomitant]
     Active Substance: FLUTICASONE PROPIONATE\SALMETEROL XINAFOATE
     Indication: ASTHMA
     Dosage: 500 UG, BID
     Route: 055
     Dates: start: 20110427
  19. TRAMCET [Concomitant]
     Active Substance: ACETAMINOPHEN\TRAMADOL
     Indication: PSORIATIC ARTHROPATHY
     Dosage: 1 DF:TRAMADOL HYDROCHLORIDE 37.5MG / ACETAMINOPHEN 325MG, QID
     Route: 048
     Dates: start: 20150326

REACTIONS (4)
  - Pyrexia [Unknown]
  - Dyspnoea [Recovering/Resolving]
  - Influenza [Recovered/Resolved]
  - Malaise [Recovering/Resolving]

NARRATIVE: CASE EVENT DATE: 20160226
